FAERS Safety Report 12338287 (Version 1)
Quarter: 2016Q2

REPORT INFORMATION
  Report Type: Spontaneous
  Country: SV (occurrence: SV)
  Receive Date: 20160505
  Receipt Date: 20160505
  Transmission Date: 20160815
  Serious: No
  Sender: FDA-Public Use
  Company Number: SV-ELI_LILLY_AND_COMPANY-SV201604009546

PATIENT
  Age: 65 Year
  Sex: Male

DRUGS (1)
  1. TADALAFIL [Suspect]
     Active Substance: TADALAFIL
     Indication: LOWER URINARY TRACT SYMPTOMS
     Dosage: 5 MG, UNKNOWN
     Route: 065

REACTIONS (1)
  - Visual impairment [Recovered/Resolved]
